FAERS Safety Report 4358498-3 (Version None)
Quarter: 2004Q2

REPORT INFORMATION
  Report Type: 
  Country: None (occurrence: None)
  Receive Date: 20040514
  Receipt Date: 20040414
  Transmission Date: 20050107
  Serious: Yes (Hospitalization)
  Sender: FDA-Public Use
  Company Number: 2004IM000527

PATIENT
  Age: 67 Year
  Sex: Male

DRUGS (18)
  1. CARVEDILOL [Suspect]
     Dosage: 12.5MG PER DAY
     Route: 048
     Dates: start: 20031120, end: 20040326
  2. INTERFERON GAMMA [Suspect]
     Indication: PULMONARY FIBROSIS
     Dosage: 200UG THREE TIMES PER WEEK
     Route: 058
     Dates: start: 20040217, end: 20040327
  3. EFFEXOR [Concomitant]
  4. ZANAFLEX [Concomitant]
  5. NEURONTIN [Concomitant]
  6. COUMADIN [Concomitant]
  7. SYNTHROID [Concomitant]
  8. CALCIUM LACTATE [Concomitant]
  9. LIPITOR [Concomitant]
  10. VITAMIN E [Concomitant]
  11. VITAMIN D [Concomitant]
  12. PREDNISONE [Concomitant]
     Dates: start: 20030121
  13. ALDACTONE [Concomitant]
     Dates: start: 20011101
  14. SINEMET [Concomitant]
     Dates: start: 20020903
  15. LASIX [Concomitant]
     Dates: start: 20011101
  16. POTASSIUM [Concomitant]
  17. ADVAIR DISKUS 100/50 [Concomitant]
  18. MIRAPEX [Concomitant]

REACTIONS (10)
  - ASTHENIA [None]
  - DYSPNOEA [None]
  - DYSSTASIA [None]
  - FALL [None]
  - HYPOTENSION [None]
  - HYPOXIA [None]
  - INTERNATIONAL NORMALISED RATIO INCREASED [None]
  - MOBILITY DECREASED [None]
  - PYREXIA [None]
  - SYNCOPE [None]
